FAERS Safety Report 9394670 (Version 2)
Quarter: 2013Q3

REPORT INFORMATION
  Report Type: Spontaneous
  Country: US (occurrence: US)
  Receive Date: 20130711
  Receipt Date: 20130802
  Transmission Date: 20140515
  Serious: No
  Sender: FDA-Public Use
  Company Number: US-BAYER-2013-084099

PATIENT
  Age: 86 Year
  Sex: Female
  Weight: 81.63 kg

DRUGS (1)
  1. ALEVE CAPLET [Suspect]
     Indication: BACK PAIN
     Dosage: 2 DF, QD WITH FOOD
     Route: 048
     Dates: start: 201303, end: 201307

REACTIONS (2)
  - Drug ineffective [None]
  - Incorrect drug administration duration [None]
